FAERS Safety Report 8969606 (Version 1)
Quarter: 2012Q4

REPORT INFORMATION
  Report Type: 
  Country: US (occurrence: US)
  Receive Date: 20121218
  Receipt Date: 20121218
  Transmission Date: 20130627
  Serious: Yes (Other)
  Sender: FDA-Public Use
  Company Number: US-BRISTOL-MYERS SQUIBB COMPANY-16270308

PATIENT
  Age: 19 Year
  Sex: Female
  Weight: 58.96 kg

DRUGS (2)
  1. ABILIFY [Suspect]
     Indication: BIPOLAR DISORDER
     Dosage: Started as 5 mg then dose increased to 7.5mg on 03-Feb-2009
     Route: 048
     Dates: start: 200901, end: 20111201
  2. ADDERALL XR [Concomitant]

REACTIONS (2)
  - Tardive dyskinesia [Not Recovered/Not Resolved]
  - Alopecia [Not Recovered/Not Resolved]
